FAERS Safety Report 7394117-X (Version None)
Quarter: 2011Q2

REPORT INFORMATION
  Report Type: 
  Country: None (occurrence: None)
  Receive Date: 20110405
  Receipt Date: 20110328
  Transmission Date: 20111010
  Serious: Yes (Other)
  Sender: FDA-Public Use
  Company Number: US-AMGEN-USASP2011016441

PATIENT
  Age: 64 Year
  Sex: Male

DRUGS (2)
  1. BOTOX [Concomitant]
  2. ENBREL [Suspect]
     Indication: RHEUMATOID ARTHRITIS
     Dosage: 50 MG, QWK

REACTIONS (4)
  - ARTHROPOD BITE [None]
  - RHEUMATOID ARTHRITIS [None]
  - SOMNOLENCE [None]
  - LOSS OF CONSCIOUSNESS [None]
